FAERS Safety Report 8281374-0 (Version None)
Quarter: 2012Q2

REPORT INFORMATION
  Report Type: 
  Country: None (occurrence: None)
  Receive Date: 20120413
  Receipt Date: 20120329
  Transmission Date: 20120825
  Serious: Yes (Hospitalization, Other)
  Sender: FDA-Public Use
  Company Number: FR-AMGEN-FRASP2012022008

PATIENT
  Age: 56 Year
  Sex: Male

DRUGS (2)
  1. INDOMETHACIN [Concomitant]
     Dosage: 150 MG, 1X/DAY
  2. ENBREL [Suspect]
     Indication: ANKYLOSING SPONDYLITIS
     Dosage: 50 MG, QWK
     Route: 058
     Dates: start: 20020201, end: 20080901

REACTIONS (1)
  - LUNG NEOPLASM MALIGNANT [None]
